FAERS Safety Report 13168599 (Version 1)
Quarter: 2017Q1

REPORT INFORMATION
  Report Type: Spontaneous
  Country: US (occurrence: US)
  Receive Date: 20170131
  Receipt Date: 20170131
  Transmission Date: 20170428
  Serious: No
  Sender: FDA-Public Use
  Company Number: US-BAUSCH-BL-2016-027544

PATIENT
  Sex: Female

DRUGS (2)
  1. PREVACID [Concomitant]
     Active Substance: LANSOPRAZOLE
     Indication: PRODUCT USED FOR UNKNOWN INDICATION
  2. UCERIS [Suspect]
     Active Substance: BUDESONIDE
     Indication: PRODUCT USED FOR UNKNOWN INDICATION
     Dosage: SAMPLES
     Route: 065
     Dates: start: 20161013

REACTIONS (3)
  - Gait disturbance [Unknown]
  - Muscle spasms [Unknown]
  - Insomnia [Unknown]
